FAERS Safety Report 9616765 (Version 2)
Quarter: 2013Q4

REPORT INFORMATION
  Report Type: Report from Study
  Country: US (occurrence: US)
  Receive Date: 20131011
  Receipt Date: 20131026
  Transmission Date: 20140711
  Serious: Yes (Hospitalization)
  Sender: FDA-Public Use
  Company Number: US-ROCHE-1287082

PATIENT
  Sex: Male

DRUGS (1)
  1. ALTEPLASE [Suspect]
     Indication: DEEP VEIN THROMBOSIS
     Route: 065
     Dates: start: 20130925, end: 20130926

REACTIONS (1)
  - Pain in extremity [Unknown]
